FAERS Safety Report 16754018 (Version 1)
Quarter: 2019Q3

REPORT INFORMATION
  Report Type: Spontaneous
  Country: IN (occurrence: IN)
  Receive Date: 20190829
  Receipt Date: 20190829
  Transmission Date: 20191005
  Serious: Yes (Other)
  Sender: FDA-Public Use
  Company Number: IN-PFIZER INC-2017238352

PATIENT
  Age: 74 Year
  Sex: Female

DRUGS (1)
  1. AROMASIN [Suspect]
     Active Substance: EXEMESTANE
     Indication: BREAST CANCER
     Dosage: 25 MG, 1X/DAY
     Route: 048
     Dates: start: 2017

REACTIONS (6)
  - Restlessness [Unknown]
  - Pain [Unknown]
  - Blood pressure increased [Unknown]
  - Anger [Unknown]
  - Blood glucose increased [Unknown]
  - Cataract [Unknown]
